FAERS Safety Report 6168326-1 (Version None)
Quarter: 2009Q2

REPORT INFORMATION
  Report Type: 
  Country: None (occurrence: None)
  Receive Date: 20090423
  Receipt Date: 20090415
  Transmission Date: 20091009
  Serious: Yes (Hospitalization)
  Sender: FDA-Public Use
  Company Number: GXKR2009PL04692

PATIENT
  Age: 80 Year
  Sex: Female
  Weight: 64 kg

DRUGS (5)
  1. KETOPROFEN [Suspect]
     Indication: OSTEOARTHRITIS
     Dosage: 200 MG  ORAL
     Route: 048
     Dates: end: 20090227
  2. POTASSIUM CHLORIDE [Suspect]
     Dosage: 2250 MGORAL
     Route: 048
     Dates: end: 20090227
  3. INHIBACE [Suspect]
     Indication: HYPERTENSION
     Dosage: 0.5 MG  ORAL
     Route: 048
  4. ASPARGIN (ASPARTIC ACID) [Suspect]
     Dosage: 1500 MG ORAL
     Route: 048
     Dates: end: 20090227
  5. SIMVASTATIN [Concomitant]

REACTIONS (1)
  - HYPERKALAEMIA [None]
